FAERS Safety Report 4446205-5 (Version None)
Quarter: 2004Q3

REPORT INFORMATION
  Report Type: 
  Country: None (occurrence: None)
  Receive Date: 20040903
  Receipt Date: 20040823
  Transmission Date: 20050211
  Serious: Yes (Death)
  Sender: FDA-Public Use
  Company Number: 2004-DE-04479GD

PATIENT
  Age: 19 Year
  Sex: Male

DRUGS (9)
  1. DIPYRIDAMOLE [Suspect]
     Indication: RASH PAPULAR
  2. CYCLOPHOSPHAMIDE [Suspect]
     Indication: RASH PAPULAR
  3. STEROIDS (CORTICOSTEROIDS FOR SYSTEMIC USE) [Suspect]
     Indication: RASH PAPULAR
     Dosage: PO
     Route: 048
  4. DAPSONE [Suspect]
     Indication: RASH PAPULAR
  5. RIFAMPICIN [Suspect]
     Indication: RASH PAPULAR
  6. DISPIRIN [Suspect]
     Indication: RASH PAPULAR
  7. PENTOXIFYLLINE [Suspect]
     Indication: RASH PAPULAR
  8. RANITIDINE [Suspect]
     Indication: RASH PAPULAR
  9. ANTIBIOTICS (ANTIBIOTICS) [Suspect]
     Indication: RASH PAPULAR

REACTIONS (11)
  - DRUG INEFFECTIVE [None]
  - GENITAL LESION [None]
  - HAEMORRHAGE [None]
  - HOARSENESS [None]
  - MULTI-ORGAN FAILURE [None]
  - RENAL FAILURE ACUTE [None]
  - RESPIRATORY DISTRESS [None]
  - SEPSIS [None]
  - SEPTIC SHOCK [None]
  - SKIN LESION [None]
  - VOCAL CORD DISORDER [None]
